FAERS Safety Report 5288617-6 (Version None)
Quarter: 2007Q2

REPORT INFORMATION
  Report Type: 
  Country: None (occurrence: None)
  Receive Date: 20070405
  Receipt Date: 20070327
  Transmission Date: 20071010
  Serious: Yes (Death)
  Sender: FDA-Public Use
  Company Number: HU-GENENTECH-230440

PATIENT
  Sex: Female
  Weight: 44 kg

DRUGS (13)
  1. RITUXIMAB [Suspect]
     Dosage: 900 MG, Q4W
     Route: 042
     Dates: start: 20060228
  2. FLUDARABINE [Suspect]
     Indication: CHRONIC LYMPHOCYTIC LEUKAEMIA
     Dosage: 40 MG, Q4W
     Route: 042
     Dates: start: 20060228
  3. CYCLOPHOSPHAMIDE [Suspect]
     Indication: CHRONIC LYMPHOCYTIC LEUKAEMIA
     Dosage: 400 MG, Q4W
     Route: 042
     Dates: start: 20060228
  4. METHYLPREDNISOLONE 16MG TAB [Concomitant]
     Indication: DRUG USE FOR UNKNOWN INDICATION
     Dosage: 125 MG, UNK
     Dates: start: 20060926, end: 20060927
  5. DIHYDROCODEINE BITARTRATE INJ [Concomitant]
     Indication: DRUG USE FOR UNKNOWN INDICATION
     Dosage: 60 MG, UNK
     Dates: start: 20060912, end: 20060926
  6. SULFAMETHOXAZOLE [Concomitant]
     Indication: DRUG USE FOR UNKNOWN INDICATION
     Dosage: 1600 MG, UNK
     Dates: start: 20060916, end: 20060919
  7. SULFAMETHOXAZOLE [Concomitant]
     Dosage: 800 MG, UNK
     Dates: start: 20060920, end: 20060926
  8. TRIMETHOPRIM [Concomitant]
     Indication: DRUG USE FOR UNKNOWN INDICATION
     Dosage: 320 MG, UNK
     Dates: start: 20060916, end: 20060919
  9. TRIMETHOPRIM [Concomitant]
     Dosage: 160 MG, UNK
     Dates: start: 20060920, end: 20060926
  10. ACYCLOVIR [Concomitant]
     Indication: DRUG USE FOR UNKNOWN INDICATION
     Dosage: 2000 MG, UNK
     Dates: start: 20060916, end: 20060924
  11. ACYCLOVIR [Concomitant]
     Dosage: 1000 MG, UNK
     Dates: start: 20060925, end: 20060926
  12. MORPHINE [Concomitant]
     Indication: DRUG USE FOR UNKNOWN INDICATION
     Dosage: 8 MG, UNK
     Dates: start: 20060925, end: 20060927
  13. FAMOTIDINE [Concomitant]
     Indication: DRUG USE FOR UNKNOWN INDICATION
     Dosage: 800 MG, UNK
     Dates: start: 20060926, end: 20060927

REACTIONS (2)
  - CARDIOPULMONARY FAILURE [None]
  - RESPIRATORY FAILURE [None]
